FAERS Safety Report 6188078-9 (Version None)
Quarter: 2009Q2

REPORT INFORMATION
  Report Type: 
  Country: None (occurrence: None)
  Receive Date: 20090511
  Receipt Date: 20080417
  Transmission Date: 20091009
  Serious: Yes (Other)
  Sender: FDA-Public Use
  Company Number: 559260

PATIENT
  Age: 42 Year
  Sex: Male

DRUGS (2)
  1. FUZEON [Suspect]
     Indication: ACQUIRED IMMUNODEFICIENCY SYNDROME
     Dosage: 90 MG 2 PER DAY
     Dates: start: 20050101
  2. UNSPECIFIED MEDICATIONS (GENERIC UNKNOWN) [Concomitant]

REACTIONS (3)
  - CD4 LYMPHOCYTES ABNORMAL [None]
  - INJECTION SITE INDURATION [None]
  - INJECTION SITE NODULE [None]
